FAERS Safety Report 15605760 (Version 1)
Quarter: 2018Q4

REPORT INFORMATION
  Report Type: Report from Study
  Country: BR (occurrence: BR)
  Receive Date: 20181112
  Receipt Date: 20181112
  Transmission Date: 20190205
  Serious: Yes (Hospitalization)
  Sender: FDA-Public Use
  Company Number: BR-EMD SERONO-E2B_90054606

PATIENT
  Age: 50 Year
  Sex: Female

DRUGS (4)
  1. REBIF [Suspect]
     Active Substance: INTERFERON BETA-1A
     Route: 058
     Dates: start: 2018, end: 20180914
  2. REBIF [Suspect]
     Active Substance: INTERFERON BETA-1A
     Route: 058
     Dates: start: 20180921
  3. REBIF [Suspect]
     Active Substance: INTERFERON BETA-1A
     Dosage: HALF DOSE
     Route: 058
     Dates: start: 201807, end: 2018
  4. REBIF [Suspect]
     Active Substance: INTERFERON BETA-1A
     Indication: MULTIPLE SCLEROSIS
     Dosage: 20 PERCENT OF TITRATION DOSE
     Route: 058
     Dates: start: 20180709, end: 201807

REACTIONS (8)
  - Headache [Not Recovered/Not Resolved]
  - Nausea [Unknown]
  - Trigeminal neuralgia [Recovered/Resolved]
  - Product dose omission [Recovered/Resolved]
  - Crying [Unknown]
  - Product availability issue [Recovered/Resolved]
  - Tremor [Not Recovered/Not Resolved]
  - Chills [Not Recovered/Not Resolved]

NARRATIVE: CASE EVENT DATE: 2018
